FAERS Safety Report 25445588 (Version 1)
Quarter: 2025Q2

REPORT INFORMATION
  Report Type: Spontaneous
  Country: US (occurrence: US)
  Receive Date: 20250617
  Receipt Date: 20250617
  Transmission Date: 20250717
  Serious: No
  Sender: PFIZER
  Company Number: US-PFIZER INC-PV202400077547

PATIENT
  Age: 47 Year
  Sex: Female

DRUGS (2)
  1. SOMAVERT [Suspect]
     Active Substance: PEGVISOMANT
     Indication: Acromegaly
  2. LANREOTIDE [Concomitant]
     Active Substance: LANREOTIDE
     Indication: Acromegaly

REACTIONS (2)
  - Transaminases increased [Recovering/Resolving]
  - Off label use [Unknown]
